FAERS Safety Report 7537331-2 (Version None)
Quarter: 2011Q2

REPORT INFORMATION
  Report Type: 
  Country: None (occurrence: None)
  Receive Date: 20110609
  Receipt Date: 20110607
  Transmission Date: 20111010
  Serious: Yes (Hospitalization)
  Sender: FDA-Public Use
  Company Number: BR-PFIZER INC-2011123595

PATIENT
  Age: 64 Year
  Sex: Female
  Weight: 100 kg

DRUGS (2)
  1. DEPO-MEDROL [Suspect]
     Indication: HYPERSENSITIVITY
     Dosage: UNK
     Route: 030
     Dates: start: 20101001, end: 20101101
  2. GLIMEPIRIDE [Concomitant]
     Indication: DIABETES MELLITUS
     Dosage: UNK
     Dates: start: 20090101

REACTIONS (2)
  - FACIAL ASYMMETRY [None]
  - SWELLING [None]
